FAERS Safety Report 7348006-7 (Version None)
Quarter: 2011Q1

REPORT INFORMATION
  Report Type: 
  Country: None (occurrence: None)
  Receive Date: 20110311
  Receipt Date: 20110303
  Transmission Date: 20110831
  Serious: Yes (Hospitalization)
  Sender: FDA-Public Use
  Company Number: JP-MPIJNJ-2011-00896

PATIENT

DRUGS (3)
  1. VELCADE [Suspect]
     Indication: LEUKAEMIA PLASMACYTIC
     Dosage: UNK
     Route: 042
     Dates: start: 20110218, end: 20110228
  2. ADRIACIN [Concomitant]
     Indication: LEUKAEMIA PLASMACYTIC
     Dosage: UNK
     Route: 042
  3. DEXAMETHASONE [Concomitant]
     Indication: LEUKAEMIA PLASMACYTIC

REACTIONS (1)
  - GAMMA-GLUTAMYLTRANSFERASE INCREASED [None]
